FAERS Safety Report 7784199-5 (Version None)
Quarter: 2011Q3

REPORT INFORMATION
  Report Type: 
  Country: None (occurrence: None)
  Receive Date: 20110928
  Receipt Date: 20110921
  Transmission Date: 20111222
  Serious: Yes (Life-Threatening, Hospitalization)
  Sender: FDA-Public Use
  Company Number: SE-CELGENEUS-150-21880-11090999

PATIENT
  Sex: Male
  Weight: 101 kg

DRUGS (14)
  1. PLENDIL [Concomitant]
     Indication: HYPERTENSION
     Dosage: 10 MILLIGRAM
     Route: 048
     Dates: start: 20110823
  2. ACETAMINOPHEN [Concomitant]
     Indication: BACK PAIN
     Dosage: 1 GRAM
     Route: 048
     Dates: start: 20110825
  3. DEXAMETHASONE [Suspect]
     Indication: MULTIPLE MYELOMA
     Dosage: 40 MILLIGRAM
     Route: 048
     Dates: start: 20110905, end: 20110905
  4. PAMIDRONATE DISODIUM [Concomitant]
     Indication: BONE LESION
     Dosage: .3333 MILLIGRAM
     Route: 041
     Dates: start: 20090923
  5. CARFILZOMIB [Suspect]
     Indication: MULTIPLE MYELOMA
     Dosage: 43 MILLIGRAM
     Route: 041
     Dates: start: 20110905, end: 20110906
  6. CIPROFLOXACIN [Concomitant]
     Indication: ANTIBIOTIC PROPHYLAXIS
     Dosage: 1000 MILLIGRAM
     Route: 048
     Dates: start: 20110904
  7. REVLIMID [Suspect]
     Indication: MULTIPLE MYELOMA
     Dosage: 25 MILLIGRAM
     Route: 048
     Dates: start: 20110905, end: 20110906
  8. LOSARTAN/HYDROCLOTIAZID [Concomitant]
     Indication: HYPERTENSION
     Dosage: 100/12.5MG
     Route: 048
     Dates: start: 20110823
  9. CARFILZOMIB [Suspect]
     Dosage: 27 MILLIGRAM
     Route: 041
     Dates: start: 20110912
  10. FRAGMIN [Concomitant]
     Indication: PULMONARY EMBOLISM
  11. ACICLOVIR RANBAXY [Concomitant]
     Indication: ANTIVIRAL PROPHYLAXIS
     Dosage: 800 MILLIGRAM
     Route: 048
     Dates: start: 20110904
  12. FRAGMIN [Concomitant]
     Indication: ANTICOAGULANT THERAPY
     Dosage: 10000 IU (INTERNATIONAL UNIT)
     Route: 058
     Dates: start: 20110905
  13. FRAGMIN [Concomitant]
     Indication: ANTIPLATELET THERAPY
     Dosage: 7500 IU (INTERNATIONAL UNIT)
     Route: 058
     Dates: start: 20110809
  14. PANTOPRAZOLE [Concomitant]
     Dosage: 20 MILLIGRAM
     Route: 048
     Dates: start: 20110904

REACTIONS (1)
  - PULMONARY EMBOLISM [None]
